FAERS Safety Report 19833640 (Version 1)
Quarter: 2021Q3

REPORT INFORMATION
  Report Type: Spontaneous
  Country: US (occurrence: US)
  Receive Date: 20210915
  Receipt Date: 20210915
  Transmission Date: 20211014
  Serious: No
  Sender: FDA-Public Use
  Company Number: US-BRISTOL-MYERS SQUIBB COMPANY-BMS-2021-088695

PATIENT
  Age: 62 Year
  Sex: Male
  Weight: 103.87 kg

DRUGS (1)
  1. ELIQUIS [Suspect]
     Active Substance: APIXABAN
     Indication: COVID-19
     Dosage: UNK
     Route: 065
     Dates: start: 20210902

REACTIONS (4)
  - Fatigue [Unknown]
  - Dyspnoea [Unknown]
  - Product packaging difficult to open [Unknown]
  - Product dose omission issue [Unknown]

NARRATIVE: CASE EVENT DATE: 20210902
